FAERS Safety Report 5467409-9 (Version None)
Quarter: 2007Q3

REPORT INFORMATION
  Report Type: 
  Country: None (occurrence: None)
  Receive Date: 20070925
  Receipt Date: 20070913
  Transmission Date: 20080115
  Serious: Yes (Other)
  Sender: FDA-Public Use
  Company Number: US-PFIZER INC-2007076900

PATIENT
  Sex: Female
  Weight: 49.9 kg

DRUGS (4)
  1. CHANTIX [Suspect]
     Indication: SMOKING CESSATION THERAPY
     Dates: start: 20070905, end: 20070909
  2. VENTOLIN [Concomitant]
  3. SPIRIVA [Concomitant]
  4. BENICAR [Concomitant]

REACTIONS (4)
  - BACK PAIN [None]
  - CHEST PAIN [None]
  - DYSPNOEA [None]
  - RIB FRACTURE [None]
